FAERS Safety Report 5953545-7 (Version None)
Quarter: 2008Q4

REPORT INFORMATION
  Report Type: 
  Country: None (occurrence: None)
  Receive Date: 20081114
  Receipt Date: 20081111
  Transmission Date: 20090506
  Serious: Yes (Death, Hospitalization)
  Sender: FDA-Public Use
  Company Number: US-ASTRAZENECA-2008UW25280

PATIENT
  Age: 62 Year
  Sex: Male
  Weight: 98 kg

DRUGS (17)
  1. ATENOLOL [Suspect]
     Route: 048
  2. ZESTORETIC [Suspect]
     Dosage: 20/12.5 MG
  3. PLAVIX [Suspect]
     Route: 048
  4. VIOXX [Suspect]
     Indication: OSTEOARTHRITIS
     Route: 048
     Dates: start: 20000901, end: 20040701
  5. VIOXX [Suspect]
     Indication: ARTHRALGIA
     Route: 048
     Dates: start: 20000901, end: 20040701
  6. VIOXX [Suspect]
     Route: 048
  7. VIOXX [Suspect]
     Route: 048
  8. PEPCID [Suspect]
  9. LIPITOR [Suspect]
  10. IMDUR [Suspect]
  11. ASPIRIN [Suspect]
  12. FEXOFENADINE HYDROCHLORIDE [Concomitant]
  13. FLUTICASONE PROPIONATE [Concomitant]
  14. BUDESONIDE [Concomitant]
  15. ASCORBIC ACID [Concomitant]
  16. GLUCOSAMINE [Concomitant]
  17. VITAMINS [Concomitant]

REACTIONS (27)
  - ABDOMINAL DISTENSION [None]
  - ABDOMINAL PAIN [None]
  - ANXIETY DISORDER [None]
  - ASPIRATION [None]
  - BRONCHOSPASM [None]
  - BUNDLE BRANCH BLOCK LEFT [None]
  - CARDIAC FAILURE CONGESTIVE [None]
  - CHEST PAIN [None]
  - CONSTIPATION [None]
  - DIVERTICULITIS [None]
  - DIVERTICULUM [None]
  - DYSPNOEA [None]
  - ERECTILE DYSFUNCTION [None]
  - FEELING COLD [None]
  - FLANK PAIN [None]
  - GASTROOESOPHAGEAL REFLUX DISEASE [None]
  - HAEMATOCHEZIA [None]
  - HYPERCHOLESTEROLAEMIA [None]
  - HYPERTENSION [None]
  - HYPOTENSION [None]
  - LIVER FUNCTION TEST ABNORMAL [None]
  - MIGRAINE [None]
  - MYOCARDIAL INFARCTION [None]
  - PSEUDOMEMBRANOUS COLITIS [None]
  - SEBORRHOEIC DERMATITIS [None]
  - SUDDEN CARDIAC DEATH [None]
  - VERY LOW DENSITY LIPOPROTEIN INCREASED [None]
